FAERS Safety Report 6444408-1 (Version None)
Quarter: 2009Q4

REPORT INFORMATION
  Report Type: 
  Country: None (occurrence: None)
  Receive Date: 20091118
  Receipt Date: 20091106
  Transmission Date: 20100525
  Serious: No
  Sender: FDA-Public Use
  Company Number: US-ELI_LILLY_AND_COMPANY-US200911003089

PATIENT
  Age: 54 Year
  Sex: Male

DRUGS (4)
  1. CIALIS [Suspect]
     Indication: ERECTILE DYSFUNCTION
     Dosage: UNK, AS NEEDED
     Route: 065
  2. VIAGRA [Concomitant]
     Indication: ERECTILE DYSFUNCTION
     Dosage: UNK, AS NEEDED
     Route: 065
     Dates: start: 20050101
  3. LEVITRA [Concomitant]
     Indication: ERECTILE DYSFUNCTION
     Dosage: 20 MG, AS NEEDED
     Route: 065
  4. LEVITRA [Concomitant]
     Dosage: 10 MG, AS NEEDED
     Route: 065

REACTIONS (3)
  - HEADACHE [None]
  - HYPERACUSIS [None]
  - PHOTOPHOBIA [None]
